FAERS Safety Report 5040707-9 (Version None)
Quarter: 2006Q2

REPORT INFORMATION
  Report Type: 
  Country: None (occurrence: None)
  Receive Date: 20060629
  Receipt Date: 20060629
  Transmission Date: 20061013
  Serious: No
  Sender: FDA-Public Use
  Company Number: None

PATIENT
  Sex: Female
  Weight: 66.2252 kg

DRUGS (3)
  1. ABRAXANE [Suspect]
     Indication: BREAST CANCER METASTATIC
     Dosage: 430 MG Q 3 WEEKS IV; (DOSED @ 100 MG/M2 WKLY 1/06 - 2/06)
     Route: 042
     Dates: start: 20060101, end: 20060201
  2. ABRAXANE [Suspect]
     Indication: BREAST CANCER METASTATIC
     Dosage: 430 MG Q 3 WEEKS IV; (DOSED @ 100 MG/M2 WKLY 1/06 - 2/06)
     Route: 042
     Dates: start: 20060403
  3. ZOMETA [Concomitant]

REACTIONS (1)
  - RASH MACULO-PAPULAR [None]
